FAERS Safety Report 23917686 (Version 1)
Quarter: 2024Q2

REPORT INFORMATION
  Report Type: Other
  Country: DE (occurrence: DE)
  Receive Date: 20240530
  Receipt Date: 20240530
  Transmission Date: 20240716
  Serious: Yes (Life-Threatening, Hospitalization, Other)
  Sender: FDA-Public Use
  Company Number: None

PATIENT
  Age: 18 Year
  Sex: Female
  Weight: 55 kg

DRUGS (1)
  1. VENLAFAXINE [Suspect]
     Active Substance: VENLAFAXINE HYDROCHLORIDE
     Indication: Suicidal ideation
     Dosage: 100 TABLETS ; IN TOTAL
     Route: 048

REACTIONS (18)
  - Mydriasis [Unknown]
  - Lactic acidosis [Unknown]
  - Ventricular hypokinesia [Recovered/Resolved]
  - Toxicity to various agents [Recovering/Resolving]
  - Hepatic failure [Recovered/Resolved]
  - Coagulopathy [Unknown]
  - Left ventricular dysfunction [Recovered/Resolved]
  - Cardiac arrest [Recovering/Resolving]
  - Intentional overdose [Recovering/Resolving]
  - Renal failure [Recovering/Resolving]
  - Multiple organ dysfunction syndrome [Recovered/Resolved]
  - Circulatory collapse [Unknown]
  - Intestinal ischaemia [Unknown]
  - Compartment syndrome [Unknown]
  - Rhabdomyolysis [Unknown]
  - Small intestinal perforation [Unknown]
  - Peripheral ischaemia [Unknown]
  - Cardiogenic shock [Recovered/Resolved]
